FAERS Safety Report 4799948-8 (Version None)
Quarter: 2005Q4

REPORT INFORMATION
  Report Type: 
  Country: None (occurrence: None)
  Receive Date: 20051013
  Receipt Date: 20051007
  Transmission Date: 20060501
  Serious: Yes (Death)
  Sender: FDA-Public Use
  Company Number: 27653

PATIENT
  Sex: Female

DRUGS (1)
  1. ALDARA [Suspect]
     Indication: CONDYLOMA ACUMINATUM

REACTIONS (2)
  - IMMUNOSUPPRESSION [None]
  - INTRACRANIAL ANEURYSM [None]
